FAERS Safety Report 5876084-0 (Version None)
Quarter: 2008Q3

REPORT INFORMATION
  Report Type: 
  Country: None (occurrence: None)
  Receive Date: 20080910
  Receipt Date: 20080904
  Transmission Date: 20090109
  Serious: Yes (Other)
  Sender: FDA-Public Use
  Company Number: JP-ABBOTT-08P-087-0472545-00

PATIENT
  Age: 78 Year
  Sex: Male

DRUGS (4)
  1. LEUPROLIDE ACETATE [Suspect]
     Indication: PROSTATE CANCER
     Route: 058
     Dates: start: 20060203, end: 20070330
  2. FLUTAMIDE [Concomitant]
     Indication: PROSTATE CANCER
     Route: 048
  3. URSODEOXYCHOLIC ACID [Concomitant]
     Indication: HEPATIC FUNCTION ABNORMAL
     Route: 048
     Dates: start: 20061013
  4. URSODEOXYCHOLIC ACID [Concomitant]
     Indication: PROPHYLAXIS

REACTIONS (1)
  - INJECTION SITE ULCER [None]
